FAERS Safety Report 25587305 (Version 1)
Quarter: 2025Q3

REPORT INFORMATION
  Report Type: Report from Study
  Country: US (occurrence: US)
  Receive Date: 20250721
  Receipt Date: 20250721
  Transmission Date: 20251021
  Serious: No
  Sender: MALLINCKRODT
  Company Number: US-MALLINCKRODT-MNK202504338

PATIENT
  Age: 33 Year
  Sex: Female

DRUGS (6)
  1. CORTICOTROPIN [Suspect]
     Active Substance: CORTICOTROPIN
     Indication: Psoriatic arthropathy
     Route: 058
     Dates: start: 20250119
  2. HUMIRA [Concomitant]
     Active Substance: ADALIMUMAB
  3. TALTZ [Concomitant]
     Active Substance: IXEKIZUMAB
  4. TREMFYA [Concomitant]
     Active Substance: GUSELKUMAB
  5. OTEZLA [Concomitant]
     Active Substance: APREMILAST
  6. HYDROXYCHLOROQUINE [Concomitant]
     Active Substance: HYDROXYCHLOROQUINE

REACTIONS (1)
  - Drug hypersensitivity [Unknown]

NARRATIVE: CASE EVENT DATE: 20250101
